FAERS Safety Report 8832575 (Version 2)
Quarter: 2012Q4

REPORT INFORMATION
  Report Type: 
  Country: US (occurrence: US)
  Receive Date: 20121010
  Receipt Date: 20121022
  Transmission Date: 20130627
  Serious: Yes (Death, Life-Threatening)
  Sender: FDA-Public Use
  Company Number: US-BRISTOL-MYERS SQUIBB COMPANY-17014291

PATIENT
  Age: 75 Year
  Sex: Male
  Weight: 94 kg

DRUGS (6)
  1. BARACLUDE [Suspect]
     Indication: HEPATITIS B
     Route: 048
     Dates: start: 20080508, end: 201206
  2. NPH INSULIN [Concomitant]
  3. LASIX [Concomitant]
  4. METOPROLOL [Concomitant]
  5. POTASSIUM [Concomitant]
  6. SYNTHROID [Concomitant]

REACTIONS (5)
  - Pneumonia [Fatal]
  - Hepatic cirrhosis [Fatal]
  - Hepatocellular carcinoma [Fatal]
  - Acute respiratory distress syndrome [Fatal]
  - Renal failure [Fatal]
